FAERS Safety Report 24949646 (Version 1)
Quarter: 2025Q1

REPORT INFORMATION
  Report Type: Spontaneous
  Country: US (occurrence: US)
  Receive Date: 20250210
  Receipt Date: 20250210
  Transmission Date: 20250409
  Serious: Yes (Hospitalization)
  Sender: MYLAN
  Company Number: US-MYLANLABS-2025M1009074

PATIENT
  Age: 12 Year
  Sex: Male

DRUGS (1)
  1. CALCITONIN SALMON [Suspect]
     Active Substance: CALCITONIN SALMON
     Indication: Hypercalcaemia
     Route: 042

REACTIONS (1)
  - Therapy non-responder [Unknown]
